FAERS Safety Report 6045784-4 (Version None)
Quarter: 2009Q1

REPORT INFORMATION
  Report Type: 
  Country: None (occurrence: None)
  Receive Date: 20090121
  Receipt Date: 20090113
  Transmission Date: 20090719
  Serious: Yes (Life-Threatening)
  Sender: FDA-Public Use
  Company Number: AU-JNJFOC-20090103055

PATIENT
  Sex: Female
  Weight: 90 kg

DRUGS (3)
  1. TOPAMAX [Suspect]
     Indication: MIGRAINE PROPHYLAXIS
     Route: 048
  2. LEXAPRO [Concomitant]
  3. SANDOMIGRAN [Concomitant]

REACTIONS (3)
  - AGITATION [None]
  - ANXIETY [None]
  - HALLUCINATION, AUDITORY [None]
